FAERS Safety Report 9032518 (Version 3)
Quarter: 2013Q2

REPORT INFORMATION
  Report Type: Spontaneous
  Country: US (occurrence: US)
  Receive Date: 20130125
  Receipt Date: 20130513
  Transmission Date: 20140414
  Serious: Yes (Other)
  Sender: FDA-Public Use
  Company Number: US-ROCHE-632809

PATIENT
  Age: 37 Year
  Sex: Female
  Weight: 61.2 kg

DRUGS (8)
  1. ACCUTANE [Suspect]
     Indication: ACNE CYSTIC
     Route: 048
  2. ACCUTANE [Suspect]
     Route: 048
     Dates: start: 20001113, end: 20001123
  3. ACCUTANE [Suspect]
     Route: 048
     Dates: start: 20010815, end: 20011219
  4. ACCUTANE [Suspect]
     Route: 048
     Dates: start: 20020701, end: 20021011
  5. DOXYCYCLINE [Concomitant]
     Indication: ACNE
     Route: 065
  6. AMITRIPTYLINE [Concomitant]
     Indication: HEADACHE
  7. CONDYLOX [Concomitant]
  8. METAMUCIL [Concomitant]

REACTIONS (11)
  - Inflammatory bowel disease [Unknown]
  - Crohn^s disease [Unknown]
  - Depression [Unknown]
  - Large intestine polyp [Unknown]
  - Blood cholesterol increased [Recovered/Resolved]
  - Nasopharyngitis [Unknown]
  - Musculoskeletal stiffness [Unknown]
  - Musculoskeletal stiffness [Unknown]
  - Dyspnoea [Recovered/Resolved]
  - Vision blurred [Unknown]
  - Dizziness [Unknown]
